FAERS Safety Report 26002313 (Version 3)
Quarter: 2025Q4

REPORT INFORMATION
  Report Type: Report from Study
  Country: EU (occurrence: EU)
  Receive Date: 20251105
  Receipt Date: 20251128
  Transmission Date: 20260117
  Serious: Yes (Hospitalization)
  Sender: ABBVIE
  Company Number: EU-ABBVIE-6532612

PATIENT
  Age: 76 Year
  Sex: Female

DRUGS (3)
  1. CARBIDOPA\LEVODOPA [Suspect]
     Active Substance: CARBIDOPA\LEVODOPA
     Indication: Parkinson^s disease
     Dosage: 20MG LEVODOPA+5 MG CARBIDOPA?INITIAL DOSES: ?MORNING DOSE: 13.4ML, ?CONTINUOUS DOSE: 1.9ML/H, ?EX...
     Route: 050
     Dates: start: 20210721
  2. CARBIDOPA\LEVODOPA [Suspect]
     Active Substance: CARBIDOPA\LEVODOPA
     Dosage: 20MG LEVODOPA+5 MG CARBIDOPA ?MORNING DOSE: 11.6ML, ?CONTINUOUS DOSE: 4.4CC/H, ?EXTRA DOSE: 2.5ML
     Route: 050
     Dates: start: 20241007, end: 20251107
  3. CARBIDOPA\LEVODOPA [Suspect]
     Active Substance: CARBIDOPA\LEVODOPA
     Dosage: 20MG LEVODOPA+5 MG CARBIDOPA ?MORNING DOSE: 11.6ML, ?CONTINUOUS DOSE: 4CC/H, ?EXTRA DOSE: 2.8CC/H
     Route: 050
     Dates: start: 20251107

REACTIONS (6)
  - Hydronephrosis [Recovered/Resolved]
  - Confusional state [Recovering/Resolving]
  - Nephrostomy [Not Recovered/Not Resolved]
  - Haematuria [Recovered/Resolved]
  - Hypokalaemia [Recovered/Resolved]
  - Urinary tract infection [Unknown]

NARRATIVE: CASE EVENT DATE: 20250611
